FAERS Safety Report 4526053-8 (Version None)
Quarter: 2004Q4

REPORT INFORMATION
  Report Type: 
  Country: None (occurrence: None)
  Receive Date: 20041129
  Receipt Date: 20041027
  Transmission Date: 20050328
  Serious: Yes (Hospitalization)
  Sender: FDA-Public Use
  Company Number: USA040874979

PATIENT
  Age: 19 Year
  Sex: Male
  Weight: 66 kg

DRUGS (7)
  1. ZYPREXA [Suspect]
     Indication: DEPRESSION
     Dosage: 5 MG
  2. FLUOXETINE [Suspect]
     Indication: DEPRESSION
     Dosage: 20 MG
  3. FLONASE [Concomitant]
  4. ALLEGRA-D [Concomitant]
  5. DEPAKOTE [Concomitant]
  6. LITHOBID [Concomitant]
  7. AMBIEN [Concomitant]

REACTIONS (2)
  - OVERDOSE [None]
  - SUICIDE ATTEMPT [None]
